FAERS Safety Report 11785304 (Version 2)
Quarter: 2016Q1

REPORT INFORMATION
  Report Type: Spontaneous
  Country: AU (occurrence: AU)
  Receive Date: 20151130
  Receipt Date: 20160303
  Transmission Date: 20160525
  Serious: Yes (Other)
  Sender: FDA-Public Use
  Company Number: PHHY2015AU155115

PATIENT
  Age: 76 Year
  Sex: Male

DRUGS (1)
  1. DABRAFENIB [Suspect]
     Active Substance: DABRAFENIB
     Indication: METASTATIC MALIGNANT MELANOMA
     Dosage: UNK
     Route: 065

REACTIONS (3)
  - Rash [Unknown]
  - Kaposi^s sarcoma [Recovering/Resolving]
  - Pain [Recovering/Resolving]
